FAERS Safety Report 9218247 (Version 1)
Quarter: 2013Q2

REPORT INFORMATION
  Report Type: Spontaneous
  Country: US (occurrence: US)
  Receive Date: 20130408
  Receipt Date: 20130408
  Transmission Date: 20140414
  Serious: Yes (Disabling, Other)
  Sender: FDA-Public Use
  Company Number: US-ABBOTT-13P-163-1071923-00

PATIENT
  Age: 55 Year
  Sex: Female
  Weight: 87.62 kg

DRUGS (4)
  1. TRICOR [Suspect]
     Indication: BLOOD CHOLESTEROL INCREASED
     Route: 048
     Dates: start: 2008
  2. LIPITOR [Suspect]
     Indication: BLOOD CHOLESTEROL INCREASED
     Route: 048
     Dates: start: 2008
  3. BYSTOLIC [Concomitant]
     Indication: HYPERTENSION
  4. BENICAR [Concomitant]
     Indication: HYPERTENSION

REACTIONS (3)
  - Myelopathy [Unknown]
  - Spinal column stenosis [Unknown]
  - Blood cholesterol increased [Unknown]
